FAERS Safety Report 18293996 (Version 2)
Quarter: 2020Q3

REPORT INFORMATION
  Report Type: Spontaneous
  Country: US (occurrence: US)
  Receive Date: 20200922
  Receipt Date: 20200924
  Transmission Date: 20201103
  Serious: No
  Sender: FDA-Public Use
  Company Number: US-ASTRAZENECA-2020SF14009

PATIENT
  Age: 26692 Day
  Sex: Female
  Weight: 88.5 kg

DRUGS (1)
  1. BYDUREON BCISE [Suspect]
     Active Substance: EXENATIDE
     Route: 065
     Dates: start: 20200825

REACTIONS (5)
  - Blood glucose increased [Unknown]
  - Drug ineffective [Unknown]
  - Drug delivery system issue [Unknown]
  - Condition aggravated [Unknown]
  - Wrong technique in device usage process [Unknown]

NARRATIVE: CASE EVENT DATE: 20200825
